FAERS Safety Report 16257388 (Version 1)
Quarter: 2019Q2

REPORT INFORMATION
  Report Type: Spontaneous
  Country: IT (occurrence: IT)
  Receive Date: 20190430
  Receipt Date: 20190430
  Transmission Date: 20190711
  Serious: Yes (Hospitalization)
  Sender: FDA-Public Use
  Company Number: IT-ASTRAZENECA-2019SE61131

PATIENT
  Age: 84 Year
  Sex: Male

DRUGS (10)
  1. TRIATEC [Concomitant]
  2. DIAMICRON [Concomitant]
     Active Substance: GLICLAZIDE
  3. EBIXA [Concomitant]
     Active Substance: MEMANTINE HYDROCHLORIDE
     Route: 065
  4. JANUMET [Concomitant]
     Active Substance: METFORMIN HYDROCHLORIDE\SITAGLIPTIN PHOSPHATE
  5. QUETIAPINE. [Suspect]
     Active Substance: QUETIAPINE
     Indication: ANTIDEPRESSANT THERAPY
     Route: 048
     Dates: start: 20160101
  6. DUOPLAVIN [Suspect]
     Active Substance: ASPIRIN\CLOPIDOGREL
     Indication: ANTIPLATELET THERAPY
     Route: 048
     Dates: start: 20160101, end: 20190413
  7. LASIX VIAL [Concomitant]
  8. CARDICOR [Concomitant]
     Active Substance: BISOPROLOL
  9. TRITTICO [Concomitant]
     Active Substance: TRAZODONE HYDROCHLORIDE
  10. XATRAL [Concomitant]
     Active Substance: ALFUZOSIN

REACTIONS (1)
  - Melaena [Recovering/Resolving]

NARRATIVE: CASE EVENT DATE: 20190413
